FAERS Safety Report 5757391-9 (Version None)
Quarter: 2008Q2

REPORT INFORMATION
  Report Type: 
  Country: None (occurrence: None)
  Receive Date: 20080529
  Receipt Date: 20080518
  Transmission Date: 20081010
  Serious: Yes (Other)
  Sender: FDA-Public Use
  Company Number: IDA-00065

PATIENT

DRUGS (1)
  1. PROPRANOLOL [Suspect]
     Indication: PROPHYLAXIS

REACTIONS (1)
  - CARDIAC PACEMAKER INSERTION [None]
